FAERS Safety Report 10564507 (Version 1)
Quarter: 2014Q4

REPORT INFORMATION
  Report Type: Spontaneous
  Country: US (occurrence: US)
  Receive Date: 20141104
  Receipt Date: 20141104
  Transmission Date: 20150529
  Serious: No
  Sender: FDA-Public Use
  Company Number: US-MALLINCKRODT-T201402049

PATIENT
  Age: 59 Year
  Sex: Female
  Weight: 82.1 kg

DRUGS (2)
  1. OXYCODONE W/APAP [Suspect]
     Active Substance: ACETAMINOPHEN\OXYCODONE HYDROCHLORIDE
     Indication: BACK PAIN
     Dosage: 10/325 MG, UNK
     Route: 048
     Dates: start: 2012, end: 20140404
  2. FENTANYL TRANSDERMAL SYSTEM [Suspect]
     Active Substance: FENTANYL
     Indication: BACK PAIN
     Dosage: 50 UG/HR, ONE Q72H
     Route: 062
     Dates: end: 20140423

REACTIONS (2)
  - Electrolyte imbalance [Unknown]
  - Drug withdrawal syndrome [Not Recovered/Not Resolved]

NARRATIVE: CASE EVENT DATE: 20140401
